FAERS Safety Report 5487428-6 (Version None)
Quarter: 2007Q4

REPORT INFORMATION
  Report Type: 
  Country: None (occurrence: None)
  Receive Date: 20071016
  Receipt Date: 20071004
  Transmission Date: 20080405
  Serious: Yes (Hospitalization)
  Sender: FDA-Public Use
  Company Number: FR-PFIZER INC-2006110645

PATIENT
  Sex: Male

DRUGS (4)
  1. SUTENT [Suspect]
     Indication: RENAL CELL CARCINOMA STAGE UNSPECIFIED
     Route: 048
  2. FENTANYL [Concomitant]
     Route: 062
  3. ESOMEPRAZOLE [Concomitant]
     Route: 048
     Dates: start: 20060220
  4. LEVOTHYROXINE SODIUM [Concomitant]
     Route: 048
     Dates: start: 20060406

REACTIONS (1)
  - PERICARDIAL EFFUSION [None]
